FAERS Safety Report 12572747 (Version 2)
Quarter: 2017Q2

REPORT INFORMATION
  Report Type: Report from Study
  Country: JP (occurrence: JP)
  Receive Date: 20160720
  Receipt Date: 20170529
  Transmission Date: 20170830
  Serious: Yes (Other)
  Sender: FDA-Public Use
  Company Number: JP-ALXN-A201605155AA

PATIENT
  Age: 66 Year
  Sex: Male
  Weight: 49 kg

DRUGS (6)
  1. SOLIRIS [Suspect]
     Active Substance: ECULIZUMAB
     Dosage: 900 MG, Q2W
     Route: 042
     Dates: start: 20160616
  2. PREDONINE [Concomitant]
     Active Substance: PREDNISOLONE
     Indication: PAROXYSMAL NOCTURNAL HAEMOGLOBINURIA
     Dosage: 500 MG, QOD
     Route: 065
     Dates: end: 20160616
  3. SOLIRIS [Suspect]
     Active Substance: ECULIZUMAB
     Indication: PAROXYSMAL NOCTURNAL HAEMOGLOBINURIA
     Dosage: 600 MG, QW
     Route: 042
     Dates: start: 20160519, end: 20160609
  4. WARFARIN POTASSIUM [Concomitant]
     Active Substance: WARFARIN POTASSIUM
     Indication: PAROXYSMAL NOCTURNAL HAEMOGLOBINURIA
     Dosage: 2 MG, DAILY
     Route: 065
  5. PREDONINE [Concomitant]
     Active Substance: PREDNISOLONE
     Dosage: 500 MG, DAILY
     Route: 065
     Dates: start: 20160826, end: 20161020
  6. PREDONINE [Concomitant]
     Active Substance: PREDNISOLONE
     Dosage: 500 MG, QOD
     Route: 065
     Dates: start: 20161021, end: 20170112

REACTIONS (3)
  - Portal vein thrombosis [Recovering/Resolving]
  - Hepatic function abnormal [Not Recovered/Not Resolved]
  - Anaemia [Recovered/Resolved]

NARRATIVE: CASE EVENT DATE: 20160602
